FAERS Safety Report 10223618 (Version 1)
Quarter: 2014Q2

REPORT INFORMATION
  Report Type: Spontaneous
  Country: CH (occurrence: CH)
  Receive Date: 20140609
  Receipt Date: 20140609
  Transmission Date: 20141212
  Serious: Yes (Hospitalization)
  Sender: FDA-Public Use
  Company Number: CH-ROCHE-1414211

PATIENT
  Age: 26 Year
  Sex: Male

DRUGS (6)
  1. CELLCEPT [Suspect]
     Indication: PROPHYLAXIS AGAINST TRANSPLANT REJECTION
     Route: 048
     Dates: start: 201308, end: 20140321
  2. PROGRAF [Suspect]
     Indication: PROPHYLAXIS AGAINST TRANSPLANT REJECTION
     Route: 048
     Dates: start: 201308
  3. BACTRIM [Concomitant]
     Route: 065
     Dates: start: 201308, end: 20140205
  4. VALCYTE [Concomitant]
     Route: 065
     Dates: start: 201308, end: 20140205
  5. PREDNISONE [Concomitant]
     Route: 065
     Dates: start: 201308
  6. DILTIAZEM [Concomitant]
     Route: 065

REACTIONS (3)
  - Agranulocytosis [Recovered/Resolved]
  - Leukopenia [Recovered/Resolved]
  - Mouth ulceration [Recovered/Resolved]
